FAERS Safety Report 18751256 (Version 1)
Quarter: 2021Q1

REPORT INFORMATION
  Report Type: Spontaneous
  Country: US (occurrence: US)
  Receive Date: 20210118
  Receipt Date: 20210118
  Transmission Date: 20210419
  Serious: No
  Sender: FDA-Public Use
  Company Number: US-GLAXOSMITHKLINE-US2021008185

PATIENT
  Age: 91 Year
  Sex: Female

DRUGS (1)
  1. VOLTAREN [Suspect]
     Active Substance: DICLOFENAC SODIUM
     Indication: OSTEOPOROSIS
     Dosage: UNK

REACTIONS (4)
  - Product administered at inappropriate site [Unknown]
  - Drug effective for unapproved indication [Unknown]
  - Off label use [Unknown]
  - Product use in unapproved indication [Unknown]
